FAERS Safety Report 12782221 (Version 1)
Quarter: 2016Q3

REPORT INFORMATION
  Report Type: Spontaneous
  Country: US (occurrence: US)
  Receive Date: 20160927
  Receipt Date: 20160927
  Transmission Date: 20161109
  Serious: Yes (Other)
  Sender: FDA-Public Use
  Company Number: US-BEH-200609981

PATIENT
  Age: 42 Year
  Sex: Male

DRUGS (6)
  1. PREDNISONE. [Concomitant]
     Active Substance: PREDNISONE
     Dosage: DAILY DOSE QUANTITY: 20, DAILY DOSE UNIT: MG
  2. SINGULAIR [Concomitant]
     Active Substance: MONTELUKAST SODIUM
  3. FLOVENT [Concomitant]
     Active Substance: FLUTICASONE PROPIONATE
  4. INTAL [Concomitant]
     Active Substance: CROMOLYN SODIUM
     Route: 055
  5. ZEMAIRA [Suspect]
     Active Substance: .ALPHA.1-PROTEINASE INHIBITOR HUMAN
     Indication: ALPHA-1 ANTI-TRYPSIN DEFICIENCY
     Dosage: DAILY DOSE QUANTITY: 4.5, DAILY DOSE UNIT: G
     Route: 042
     Dates: start: 20060301, end: 20060301
  6. THEOPHYLLINE [Concomitant]
     Active Substance: THEOPHYLLINE ANHYDROUS

REACTIONS (4)
  - Coma [Recovered/Resolved]
  - Mental disorder [Recovered/Resolved]
  - Feeling abnormal [Recovered/Resolved]
  - Aura [Recovered/Resolved]

NARRATIVE: CASE EVENT DATE: 20060301
